FAERS Safety Report 4399562-2 (Version None)
Quarter: 2004Q3

REPORT INFORMATION
  Report Type: 
  Country: None (occurrence: None)
  Receive Date: 20040716
  Receipt Date: 20040707
  Transmission Date: 20050211
  Serious: Yes (Hospitalization)
  Sender: FDA-Public Use
  Company Number: NO-GLAXOSMITHKLINE-B0338632A

PATIENT
  Age: 43 Year
  Sex: Male

DRUGS (1)
  1. ZYBAN [Suspect]
     Indication: SMOKING CESSATION THERAPY
     Dosage: 150MG TWICE PER DAY
     Route: 048

REACTIONS (13)
  - C-REACTIVE PROTEIN INCREASED [None]
  - DISCOMFORT [None]
  - DYSPHAGIA [None]
  - EXANTHEM [None]
  - FACE OEDEMA [None]
  - HYPERHIDROSIS [None]
  - HYPERSENSITIVITY [None]
  - OEDEMA PERIPHERAL [None]
  - PALPITATIONS [None]
  - PARAESTHESIA [None]
  - PRURITUS [None]
  - VERTIGO [None]
  - WHITE BLOOD CELL COUNT INCREASED [None]
